FAERS Safety Report 5008267-6 (Version None)
Quarter: 2006Q2

REPORT INFORMATION
  Report Type: 
  Country: None (occurrence: None)
  Receive Date: 20060523
  Receipt Date: 20050504
  Transmission Date: 20061013
  Serious: No
  Sender: FDA-Public Use
  Company Number: US-GLAXOSMITHKLINE-A0557262A

PATIENT
  Age: 15 Year
  Sex: Female

DRUGS (2)
  1. FLOLAN [Suspect]
     Route: 042
  2. NO CONCURRENT MEDICATION [Concomitant]

REACTIONS (1)
  - IRRITABILITY [None]
